FAERS Safety Report 5252020-5 (Version None)
Quarter: 2007Q1

REPORT INFORMATION
  Report Type: 
  Country: None (occurrence: None)
  Receive Date: 20070226
  Receipt Date: 20070213
  Transmission Date: 20070707
  Serious: Yes (Hospitalization, Disabling)
  Sender: FDA-Public Use
  Company Number: 200612IM000683

PATIENT
  Age: 28 Year
  Sex: Female

DRUGS (1)
  1. ACTIMMUNE [Suspect]
     Indication: MYCOBACTERIAL INFECTION
     Dosage: TIW, SUBCUTANEOUS
     Route: 058
     Dates: start: 20010801, end: 20050901

REACTIONS (1)
  - PAPILLOMA VIRAL INFECTION [None]
